FAERS Safety Report 21706112 (Version 2)
Quarter: 2022Q4

REPORT INFORMATION
  Report Type: Spontaneous
  Country: FR (occurrence: FR)
  Receive Date: 20221209
  Receipt Date: 20221214
  Transmission Date: 20230113
  Serious: Yes (Hospitalization)
  Sender: FDA-Public Use
  Company Number: None

PATIENT
  Age: 21 Year
  Sex: Female
  Weight: 43 kg

DRUGS (1)
  1. ABILIFY [Suspect]
     Active Substance: ARIPIPRAZOLE
     Indication: Bipolar disorder
     Dosage: 5 MG, QD (IN THE MORNING)
     Route: 048

REACTIONS (11)
  - Impatience [Recovering/Resolving]
  - Feeding disorder [Recovering/Resolving]
  - Vertigo [Recovering/Resolving]
  - Nervousness [Recovering/Resolving]
  - Disturbance in attention [Recovering/Resolving]
  - Coordination abnormal [Recovering/Resolving]
  - Anxiety [Recovering/Resolving]
  - Vision blurred [Recovering/Resolving]
  - Vomiting [Recovering/Resolving]
  - Nausea [Recovering/Resolving]
  - Hyperhidrosis [Recovering/Resolving]
